FAERS Safety Report 7830399-5 (Version None)
Quarter: 2011Q4

REPORT INFORMATION
  Report Type: 
  Country: None (occurrence: None)
  Receive Date: 20111021
  Receipt Date: 20111010
  Transmission Date: 20120403
  Serious: Yes (Other)
  Sender: FDA-Public Use
  Company Number: US-PFIZER INC-2011252020

PATIENT
  Age: 53 Year
  Sex: Female

DRUGS (16)
  1. ATENOLOL [Suspect]
  2. ATACAND [Suspect]
     Route: 048
  3. LYRICA [Suspect]
     Indication: BACK PAIN
     Dosage: 150 MG, 2X/DAY
  4. POTASSIUM [Concomitant]
  5. LISINOPRIL [Suspect]
     Route: 048
  6. MONOPRIL [Suspect]
  7. LYRICA [Suspect]
     Dosage: 175 MG, 3X/DAY
  8. PERCOCET [Concomitant]
  9. LYRICA [Suspect]
     Indication: FIBROMYALGIA
     Dosage: 150 MG, 3X/DAY
  10. LYRICA [Suspect]
     Dosage: 100 MG, 2X/DAY
     Dates: start: 20100801, end: 20100829
  11. SOMA [Concomitant]
  12. VALIUM [Concomitant]
  13. LYRICA [Suspect]
     Indication: NEUROPATHY PERIPHERAL
     Dosage: 200 MG, 3X/DAY
     Route: 048
  14. CYMBALTA [Concomitant]
  15. HYDROCHLOROTHIAZIDE [Concomitant]
  16. METFORMIN [Concomitant]

REACTIONS (8)
  - RENAL IMPAIRMENT [None]
  - BACK DISORDER [None]
  - NEURALGIA [None]
  - MENTAL IMPAIRMENT [None]
  - ROAD TRAFFIC ACCIDENT [None]
  - NEUROPATHY PERIPHERAL [None]
  - FIBROMYALGIA [None]
  - BLOOD CHOLESTEROL INCREASED [None]
